FAERS Safety Report 17813871 (Version 1)
Quarter: 2020Q2

REPORT INFORMATION
  Report Type: Spontaneous
  Country: CA (occurrence: CA)
  Receive Date: 20200521
  Receipt Date: 20200521
  Transmission Date: 20200714
  Serious: Yes (Other)
  Sender: FDA-Public Use
  Company Number: CA-ALLERGAN-2020189US

PATIENT
  Sex: Male
  Weight: 98 kg

DRUGS (2)
  1. TESTOSTERONE UNK [Suspect]
     Active Substance: TESTOSTERONE
     Indication: PRODUCT USED FOR UNKNOWN INDICATION
     Dosage: UNK
     Route: 065
  2. SAIZEN [Suspect]
     Active Substance: SOMATROPIN
     Indication: PRODUCT USED FOR UNKNOWN INDICATION
     Dosage: 1.7 MG, Q WEEK
     Route: 058

REACTIONS (4)
  - Hepatic enzyme abnormal [Not Recovered/Not Resolved]
  - Insomnia [Not Recovered/Not Resolved]
  - Jaundice [Not Recovered/Not Resolved]
  - Malaise [Not Recovered/Not Resolved]
